FAERS Safety Report 15011762 (Version 1)
Quarter: 2018Q2

REPORT INFORMATION
  Report Type: Report from Study
  Country: None (occurrence: RO)
  Receive Date: 20180614
  Receipt Date: 20180614
  Transmission Date: 20180711
  Serious: Yes (Death)
  Sender: FDA-Public Use
  Company Number: RO-ABBVIE-18K-135-2385664-00

PATIENT
  Age: 70 Year
  Sex: Male

DRUGS (1)
  1. DUODOPA [Suspect]
     Active Substance: CARBIDOPA\LEVODOPA
     Indication: PARKINSON^S DISEASE
     Dosage: DM=8.50??DC=3.40??ED=1.70
     Route: 050
     Dates: start: 20180522, end: 20180611

REACTIONS (3)
  - Sepsis [Fatal]
  - Cardio-respiratory arrest [Fatal]
  - Multiple organ dysfunction syndrome [Fatal]

NARRATIVE: CASE EVENT DATE: 20180611
